FAERS Safety Report 11311381 (Version 2)
Quarter: 2015Q3

REPORT INFORMATION
  Report Type: Report from Study
  Country: CA (occurrence: CA)
  Receive Date: 20150727
  Receipt Date: 20150728
  Transmission Date: 20151125
  Serious: Yes (Hospitalization, Other)
  Sender: FDA-Public Use
  Company Number: CA-ABBVIE-15K-028-1412085-00

PATIENT
  Sex: Male

DRUGS (1)
  1. HUMIRA [Suspect]
     Active Substance: ADALIMUMAB
     Indication: CROHN^S DISEASE
     Route: 058
     Dates: start: 20110709

REACTIONS (7)
  - Crohn^s disease [Not Recovered/Not Resolved]
  - Gastrointestinal obstruction [Recovered/Resolved]
  - Gastrointestinal stenosis [Unknown]
  - Small intestine ulcer [Unknown]
  - Abdominal adhesions [Unknown]
  - Crohn^s disease [Recovered/Resolved]
  - Intestinal fibrosis [Unknown]

NARRATIVE: CASE EVENT DATE: 2012
